FAERS Safety Report 6151188-6 (Version None)
Quarter: 2009Q2

REPORT INFORMATION
  Report Type: 
  Country: None (occurrence: None)
  Receive Date: 20090408
  Receipt Date: 20090408
  Transmission Date: 20091009
  Serious: No
  Sender: FDA-Public Use
  Company Number: None

PATIENT
  Age: 21 Year
  Sex: Male
  Weight: 69.4003 kg

DRUGS (4)
  1. MINOCYCLINE HCL [Suspect]
     Indication: ACNE
     Dosage: 50MG TWICE DAILY PO
     Route: 048
     Dates: start: 20090331, end: 20090407
  2. MINOCYCLINE HCL [Suspect]
     Indication: ACNE CYSTIC
     Dosage: 50MG TWICE DAILY PO
     Route: 048
     Dates: start: 20090331, end: 20090407
  3. CLINDAMYCIN PHOSPHATE [Suspect]
     Dates: start: 20090331, end: 20090407
  4. COMPLEX15 MOISTURIZER [Concomitant]

REACTIONS (2)
  - ALCOHOL USE [None]
  - SKIN DISCOLOURATION [None]
